FAERS Safety Report 9246891 (Version 1)
Quarter: 2013Q2

REPORT INFORMATION
  Report Type: Spontaneous
  Country: FR (occurrence: CM)
  Receive Date: 20130422
  Receipt Date: 20130422
  Transmission Date: 20140414
  Serious: Yes (Hospitalization)
  Sender: FDA-Public Use
  Company Number: FR-GLAXOSMITHKLINE-B0883200A

PATIENT
  Age: 7 Year
  Sex: Male

DRUGS (2)
  1. MALANIL [Suspect]
     Indication: PROPHYLAXIS
     Route: 048
     Dates: start: 20120710, end: 20120801
  2. MALOXINE [Suspect]
     Indication: PROPHYLAXIS
     Route: 048
     Dates: start: 20120725, end: 20120803

REACTIONS (1)
  - Toxic epidermal necrolysis [Recovered/Resolved with Sequelae]
